FAERS Safety Report 8052317-X (Version None)
Quarter: 2012Q1

REPORT INFORMATION
  Report Type: 
  Country: None (occurrence: None)
  Receive Date: 20120118
  Receipt Date: 20120116
  Transmission Date: 20120608
  Serious: Yes (Disabling)
  Sender: FDA-Public Use
  Company Number: US-JNJFOC-20120100677

PATIENT
  Sex: Female
  Weight: 58.06 kg

DRUGS (2)
  1. ORTHO TRI-CYCLEN LO [Suspect]
     Route: 048
  2. ORTHO TRI-CYCLEN LO [Suspect]
     Indication: CONTRACEPTION
     Route: 048
     Dates: start: 20120101

REACTIONS (5)
  - ADVERSE EVENT [None]
  - DRUG PRESCRIBING ERROR [None]
  - WRONG TECHNIQUE IN DRUG USAGE PROCESS [None]
  - DISABILITY [None]
  - INAPPROPRIATE SCHEDULE OF DRUG ADMINISTRATION [None]
